FAERS Safety Report 18261675 (Version 2)
Quarter: 2022Q4

REPORT INFORMATION
  Report Type: Spontaneous
  Country: GB (occurrence: GB)
  Receive Date: 20200914
  Receipt Date: 20221201
  Transmission Date: 20230113
  Serious: Yes (Other)
  Sender: FDA-Public Use
  Company Number: None

PATIENT
  Sex: Female

DRUGS (9)
  1. GEMCITABINE [Suspect]
     Active Substance: GEMCITABINE
     Indication: Triple negative breast cancer
     Dosage: UNKNOWN
     Route: 065
  2. CAPECITABINE [Suspect]
     Active Substance: CAPECITABINE
     Indication: Triple negative breast cancer
     Dosage: UNKNOWN
     Route: 065
  3. CARBOPLATIN [Suspect]
     Active Substance: CARBOPLATIN
     Indication: Triple negative breast cancer
     Dosage: UNKNOWN
     Route: 065
  4. EPIRUBICIN [Suspect]
     Active Substance: EPIRUBICIN
     Indication: Triple negative breast cancer
     Dosage: UNKNOWN
     Route: 065
  5. ERIBULIN [Suspect]
     Active Substance: ERIBULIN
     Indication: Triple negative breast cancer
     Dosage: UNKNOWN
     Route: 065
  6. FLUOROURACIL [Suspect]
     Active Substance: FLUOROURACIL
     Indication: Triple negative breast cancer
     Dosage: UNKNOWN
     Route: 065
  7. CYCLOPHOSPHAMIDE [Suspect]
     Active Substance: CYCLOPHOSPHAMIDE
     Indication: Triple negative breast cancer
     Dosage: UNKNOWN
     Route: 065
  8. DOXORUBICIN HYDROCHLORIDE [Suspect]
     Active Substance: DOXORUBICIN HYDROCHLORIDE
     Indication: Triple negative breast cancer
     Route: 065
  9. TAXOL [Suspect]
     Active Substance: PACLITAXEL
     Indication: Triple negative breast cancer
     Dosage: UNKNOWN
     Route: 065

REACTIONS (1)
  - Multiple-drug resistance [Unknown]
